FAERS Safety Report 17128413 (Version 2)
Quarter: 2019Q4

REPORT INFORMATION
  Report Type: Report from Study
  Country: CA (occurrence: CA)
  Receive Date: 20191209
  Receipt Date: 20191226
  Transmission Date: 20200122
  Serious: Yes (Hospitalization, Other)
  Sender: FDA-Public Use
  Company Number: CA-ACTELION-A-CH2019-195707

PATIENT
  Age: 76 Year
  Sex: Male
  Weight: 90 kg

DRUGS (12)
  1. DIAMICRON [Concomitant]
     Active Substance: GLICLAZIDE
     Indication: TYPE 2 DIABETES MELLITUS
     Dosage: UNK
     Route: 048
     Dates: start: 2004
  2. LANSOPRAZOLE. [Concomitant]
     Active Substance: LANSOPRAZOLE
     Indication: GASTROOESOPHAGEAL REFLUX DISEASE
     Dosage: UNK
     Route: 048
  3. WARFARIN [Concomitant]
     Active Substance: WARFARIN
     Indication: PULMONARY ARTERIAL HYPERTENSION
     Dosage: UNK
     Route: 048
     Dates: start: 2017
  4. METOPROLOL. [Concomitant]
     Active Substance: METOPROLOL
     Indication: PULMONARY ARTERIAL HYPERTENSION
     Dosage: UNK
     Route: 048
     Dates: start: 2017
  5. FUROSEMIDE. [Concomitant]
     Active Substance: FUROSEMIDE
     Indication: PULMONARY ARTERIAL HYPERTENSION
     Dosage: UNK
     Route: 048
     Dates: start: 2017
  6. FUROSEMIDE. [Concomitant]
     Active Substance: FUROSEMIDE
     Dosage: UNK
     Route: 048
  7. OPSUMIT [Suspect]
     Active Substance: MACITENTAN
     Indication: PULMONARY ARTERIAL HYPERTENSION
     Dosage: 10 MG, QD
     Route: 048
     Dates: start: 20190701, end: 20190709
  8. WARFARIN [Concomitant]
     Active Substance: WARFARIN
     Indication: ATRIAL FIBRILLATION
  9. SILDENAFIL. [Concomitant]
     Active Substance: SILDENAFIL
     Indication: PULMONARY ARTERIAL HYPERTENSION
     Dosage: 20 MG, QD
     Route: 048
     Dates: start: 201804
  10. TRACLEER [Suspect]
     Active Substance: BOSENTAN
     Indication: PULMONARY ARTERIAL HYPERTENSION
     Dosage: 125 MG, QD
     Route: 048
     Dates: start: 20190904
  11. CYANOCOBALAMIN. [Concomitant]
     Active Substance: CYANOCOBALAMIN
  12. FUROSEMIDE. [Concomitant]
     Active Substance: FUROSEMIDE
     Dosage: UNK
     Route: 042

REACTIONS (22)
  - Fluid overload [Recovering/Resolving]
  - Pulmonary arterial hypertension [Unknown]
  - Condition aggravated [Unknown]
  - Polyuria [Unknown]
  - Asthenia [Unknown]
  - Fluid retention [Recovering/Resolving]
  - Gait disturbance [Unknown]
  - Fatigue [Unknown]
  - Transfusion [Recovered/Resolved]
  - Right ventricular systolic pressure decreased [Unknown]
  - Dyspnoea [Unknown]
  - Tricuspid valve incompetence [Unknown]
  - Rectal haemorrhage [Recovered/Resolved]
  - Right ventricular dilatation [Unknown]
  - Therapy non-responder [Not Recovered/Not Resolved]
  - Lower gastrointestinal haemorrhage [Recovered/Resolved]
  - Peripheral swelling [Recovering/Resolving]
  - Right ventricular failure [Recovering/Resolving]
  - Cardiac failure [Unknown]
  - Cough [Not Recovered/Not Resolved]
  - Anaemia [Unknown]
  - Hypersomnia [Not Recovered/Not Resolved]

NARRATIVE: CASE EVENT DATE: 20190709
